FAERS Safety Report 14816651 (Version 7)
Quarter: 2018Q3

REPORT INFORMATION
  Report Type: Report from Study
  Country: JP (occurrence: JP)
  Receive Date: 20180426
  Receipt Date: 20180711
  Transmission Date: 20181010
  Serious: Yes (Hospitalization)
  Sender: FDA-Public Use
  Company Number: JP-EISAI MEDICAL RESEARCH-EC-2018-038301

PATIENT
  Age: 70 Year
  Sex: Male
  Weight: 73 kg

DRUGS (22)
  1. LENVATINIB [Suspect]
     Active Substance: LENVATINIB
     Route: 048
     Dates: start: 20180501, end: 20180621
  2. PEMBROLIZUMAB. [Suspect]
     Active Substance: PEMBROLIZUMAB
     Indication: RENAL CELL CARCINOMA
     Route: 041
     Dates: start: 20180330, end: 20180330
  3. URIEF [Concomitant]
     Active Substance: SILODOSIN
  4. PETROLATUM SALICYLATE [Concomitant]
  5. HEPARINOID [Concomitant]
     Active Substance: CHONDROITIN SULFATE (BOVINE)
  6. DESALEX [Concomitant]
     Active Substance: DESLORATADINE
  7. THYRADIN S [Suspect]
     Active Substance: LEVOTHYROXINE SODIUM
     Indication: HYPOTHYROIDISM
     Route: 048
     Dates: start: 20180601, end: 20180622
  8. ANTEBATE [Concomitant]
     Active Substance: BETAMETHASONE DIPROPIONATE
  9. EVIPROSTAT [Concomitant]
     Active Substance: CHIMAPHILA UMBELLATA\MANGANESE CHLORIDE\POPULUS TREMULOIDES\SODIUM TAUROCHOLATE
  10. MINOMYCIN [Concomitant]
     Active Substance: MINOCYCLINE HYDROCHLORIDE
  11. EBASTEL [Concomitant]
     Active Substance: EBASTINE
  12. LIOVEL [Concomitant]
     Active Substance: ALOGLIPTIN BENZOATE\PIOGLITAZONE HYDROCHLORIDE
  13. MIGLITOL. [Concomitant]
     Active Substance: MIGLITOL
  14. ACTOS [Concomitant]
     Active Substance: PIOGLITAZONE HYDROCHLORIDE
  15. NESINA [Concomitant]
     Active Substance: ALOGLIPTIN BENZOATE
  16. FULMETA [Concomitant]
     Active Substance: MOMETASONE
  17. LENVATINIB [Suspect]
     Active Substance: LENVATINIB
     Indication: RENAL CELL CARCINOMA
     Route: 048
     Dates: start: 20180330, end: 20180418
  18. THYRADIN S [Suspect]
     Active Substance: LEVOTHYROXINE SODIUM
     Route: 048
     Dates: start: 20180623
  19. METGLUCO [Concomitant]
     Active Substance: METFORMIN HYDROCHLORIDE
  20. DERMOVATE [Concomitant]
     Active Substance: CLOBETASOL
  21. GLYDIL [Concomitant]
  22. APHTASOLON [Concomitant]

REACTIONS (2)
  - Autoimmune hepatitis [Recovered/Resolved]
  - Erythema multiforme [Recovering/Resolving]

NARRATIVE: CASE EVENT DATE: 20180419
